FAERS Safety Report 11051029 (Version 1)
Quarter: 2015Q2

REPORT INFORMATION
  Report Type: Spontaneous
  Country: US (occurrence: None)
  Receive Date: 20150420
  Receipt Date: 20150420
  Transmission Date: 20150821
  Serious: Yes (Disabling, Other)
  Sender: FDA-Public Use
  Company Number: None

PATIENT
  Age: 20 Year
  Sex: Female
  Weight: 56.25 kg

DRUGS (6)
  1. VITAMIN D [Concomitant]
     Active Substance: CHOLECALCIFEROL
  2. CALCIUM [Concomitant]
     Active Substance: CALCIUM
  3. IB PROFIN [Concomitant]
  4. LUPRON [Suspect]
     Active Substance: LEUPROLIDE ACETATE
     Indication: ENDOMETRIOSIS
     Dosage: DATES OF USE: 2 YEARS OR SO LUPRON INJECTIONS MONTHLY INTO THE MUSCLE
     Route: 030
  5. ESSURE [Concomitant]
     Active Substance: DEVICE
  6. MUSCLE RELAXERS (BACLOFEN) [Concomitant]

REACTIONS (9)
  - Fatigue [None]
  - Osteopenia [None]
  - Headache [None]
  - Pain [None]
  - Dizziness [None]
  - Menorrhagia [None]
  - Adhesion [None]
  - Migraine [None]
  - Quality of life decreased [None]

NARRATIVE: CASE EVENT DATE: 20090415
